FAERS Safety Report 5205410-0 (Version None)
Quarter: 2006Q4

REPORT INFORMATION
  Report Type: 
  Country: None (occurrence: None)
  Receive Date: 20061027
  Receipt Date: 20061002
  Transmission Date: 20070319
  Serious: No
  Sender: FDA-Public Use
  Company Number: 200618199US

PATIENT
  Age: 51 Year
  Sex: Female

DRUGS (3)
  1. KETEK [Suspect]
     Indication: RESPIRATORY TRACT INFECTION
     Dosage: 400 MG QD
     Dates: start: 20060908, end: 20060913
  2. VITAMINS [Concomitant]
  3. NATURAL HORMONES [Concomitant]

REACTIONS (1)
  - VISION BLURRED [None]
